FAERS Safety Report 4415518-5 (Version None)
Quarter: 2004Q3

REPORT INFORMATION
  Report Type: 
  Country: None (occurrence: None)
  Receive Date: 20040730
  Receipt Date: 20040720
  Transmission Date: 20050211
  Serious: Yes (Other)
  Sender: FDA-Public Use
  Company Number: HQWYE892306JUL04

PATIENT
  Age: 51 Year
  Sex: Female

DRUGS (3)
  1. MINOCYCLINE HCL [Suspect]
     Indication: PHARYNGITIS
     Dosage: ORAL
     Route: 048
     Dates: start: 20040412, end: 20040412
  2. IBUPROFEN [Concomitant]
  3. TRANEXAMIC ACID (TRANEXAMIC ACID) [Concomitant]

REACTIONS (1)
  - SHOCK [None]
